FAERS Safety Report 25565095 (Version 1)
Quarter: 2025Q3

REPORT INFORMATION
  Report Type: Spontaneous
  Country: CN (occurrence: CN)
  Receive Date: 20250716
  Receipt Date: 20250716
  Transmission Date: 20251020
  Serious: Yes (Hospitalization, Other)
  Sender: RANBAXY
  Company Number: CN-SUN PHARMACEUTICAL INDUSTRIES LTD-2025R1-517018

PATIENT
  Age: 64 Year
  Sex: Female
  Weight: 65 kg

DRUGS (2)
  1. BACLOFEN [Interacting]
     Active Substance: BACLOFEN
     Indication: Pain in extremity
     Dosage: 10 MILLIGRAM, TID
     Route: 065
  2. PREGABALIN [Interacting]
     Active Substance: PREGABALIN
     Indication: Pain in extremity
     Dosage: 150 MILLIGRAM, BID
     Route: 065

REACTIONS (5)
  - Drug interaction [Unknown]
  - Depressed level of consciousness [Recovered/Resolved]
  - Coma [Recovered/Resolved]
  - Somnolence [Recovered/Resolved]
  - Condition aggravated [Unknown]
